FAERS Safety Report 16219299 (Version 2)
Quarter: 2019Q3

REPORT INFORMATION
  Report Type: Report from Study
  Country: US (occurrence: US)
  Receive Date: 20190419
  Receipt Date: 20190710
  Transmission Date: 20191004
  Serious: No
  Sender: FDA-Public Use
  Company Number: PHEH2019US016996

PATIENT
  Age: 70 Year
  Sex: Female

DRUGS (2)
  1. GILENYA [Suspect]
     Active Substance: FINGOLIMOD HYDROCHLORIDE
     Indication: MULTIPLE SCLEROSIS
     Dosage: 0.5 MG, QD
     Route: 048
     Dates: start: 20190416, end: 20190416
  2. GILENYA [Suspect]
     Active Substance: FINGOLIMOD HYDROCHLORIDE
     Dosage: UNK, QD
     Route: 048

REACTIONS (4)
  - Vomiting [Unknown]
  - Feeling abnormal [Recovered/Resolved]
  - Diarrhoea [Unknown]
  - Feeling cold [Recovered/Resolved]

NARRATIVE: CASE EVENT DATE: 20190416
